FAERS Safety Report 12105090 (Version 1)
Quarter: 2016Q1

REPORT INFORMATION
  Report Type: Spontaneous
  Country: NL (occurrence: NL)
  Receive Date: 20160223
  Receipt Date: 20160223
  Transmission Date: 20160526
  Serious: Yes (Other)
  Sender: FDA-Public Use
  Company Number: NL-JNJFOC-20160215339

PATIENT
  Age: 90 Year
  Sex: Female

DRUGS (6)
  1. RISPERIDONE. [Suspect]
     Active Substance: RISPERIDONE
     Indication: DEMENTIA
     Dosage: COATED TABLETS
     Route: 048
     Dates: start: 20150929
  2. COLECALCIFEROL [Concomitant]
     Active Substance: CHOLECALCIFEROL
     Dosage: 5600 IE, DOSE (NO.) 1
     Route: 048
  3. ENALAPRIL [Concomitant]
     Active Substance: ENALAPRIL
     Dosage: DOSE (NO.) 1
     Route: 048
  4. METOPROLOL. [Concomitant]
     Active Substance: METOPROLOL
     Dosage: DOSE (NO.) 1
     Route: 048
  5. RISPERIDONE. [Suspect]
     Active Substance: RISPERIDONE
     Indication: SCREAMING
     Dosage: COATED TABLETS
     Route: 048
     Dates: start: 20150929
  6. PROMOCARD [Concomitant]
     Active Substance: ISOSORBIDE MONONITRATE
     Dosage: DOSE (NO.) 1
     Route: 048

REACTIONS (1)
  - Hemiparesis [Recovered/Resolved with Sequelae]

NARRATIVE: CASE EVENT DATE: 20151001
